FAERS Safety Report 15931571 (Version 2)
Quarter: 2019Q1

REPORT INFORMATION
  Report Type: Spontaneous
  Country: JP (occurrence: JP)
  Receive Date: 20190207
  Receipt Date: 20190222
  Transmission Date: 20190417
  Serious: Yes (Other)
  Sender: FDA-Public Use
  Company Number: JP-009507513-1902JPN000621

PATIENT
  Age: 68 Year
  Sex: Female

DRUGS (7)
  1. ATELEC [Concomitant]
     Active Substance: CILNIDIPINE
     Route: 048
  2. CILNIDIPINE [Concomitant]
     Active Substance: CILNIDIPINE
  3. GLACTIV [Suspect]
     Active Substance: SITAGLIPTIN
     Dosage: 50 MILLIGRAM/DAY
     Route: 048
     Dates: start: 201811, end: 2019
  4. GLACTIV [Suspect]
     Active Substance: SITAGLIPTIN
     Indication: TYPE 2 DIABETES MELLITUS
     Dosage: 25 MILLIGRAM/DAY
     Route: 048
     Dates: start: 2018, end: 201811
  5. MAINTATE [Concomitant]
     Active Substance: BISOPROLOL FUMARATE
     Route: 048
  6. BISOPROLOL FUMARATE. [Concomitant]
     Active Substance: BISOPROLOL FUMARATE
  7. ARGAMATE JELLY [Concomitant]
     Dosage: UNK

REACTIONS (5)
  - Arthralgia [Unknown]
  - Papilloedema [Not Recovered/Not Resolved]
  - Arthralgia [Recovering/Resolving]
  - Pain in extremity [Not Recovered/Not Resolved]
  - Hypoaesthesia [Not Recovered/Not Resolved]

NARRATIVE: CASE EVENT DATE: 201809
